FAERS Safety Report 5644100-7 (Version None)
Quarter: 2008Q1

REPORT INFORMATION
  Report Type: 
  Country: None (occurrence: None)
  Receive Date: 20080226
  Receipt Date: 20080213
  Transmission Date: 20080703
  Serious: Yes (Other)
  Sender: FDA-Public Use
  Company Number: CHNY2008BR00650

PATIENT
  Age: 18 Year
  Sex: Female
  Weight: 50 kg

DRUGS (2)
  1. EXCEDRIN TENSION HEADACHE(NCH)(ACETAMINOPHEN (PARACETAMOL), CAFFEINE) [Suspect]
     Indication: HEADACHE
     Dosage: 1 DF, QD, ORAL, 1 TABLET/DAY WHEN NEEDED, ORAL
     Route: 048
     Dates: start: 20060101, end: 20080128
  2. PROPRANOLOL [Concomitant]

REACTIONS (7)
  - BLINDNESS TRANSIENT [None]
  - DEAFNESS TRANSITORY [None]
  - DRUG DEPENDENCE [None]
  - DRUG INEFFECTIVE [None]
  - FEELING HOT [None]
  - HEADACHE [None]
  - INCORRECT DRUG ADMINISTRATION DURATION [None]
